FAERS Safety Report 26192991 (Version 1)
Quarter: 2025Q4

REPORT INFORMATION
  Report Type: Spontaneous
  Country: EU (occurrence: EU)
  Receive Date: 20251223
  Receipt Date: 20251223
  Transmission Date: 20260118
  Serious: Yes (Hospitalization)
  Sender: MYLAN
  Company Number: None

PATIENT
  Age: 90 Year
  Sex: Male

DRUGS (20)
  1. AMLODIPINE [Suspect]
     Active Substance: AMLODIPINE BESYLATE
     Indication: Product used for unknown indication
     Dosage: UNK
  2. AMLODIPINE [Suspect]
     Active Substance: AMLODIPINE BESYLATE
     Dosage: UNK
     Route: 065
  3. AMLODIPINE [Suspect]
     Active Substance: AMLODIPINE BESYLATE
     Dosage: UNK
     Route: 065
  4. AMLODIPINE [Suspect]
     Active Substance: AMLODIPINE BESYLATE
     Dosage: UNK
  5. BUPRENORPHINE [Concomitant]
     Active Substance: BUPRENORPHINE
     Dosage: UNK (5 MICROGRAMS/HOUR)
  6. BUPRENORPHINE [Concomitant]
     Active Substance: BUPRENORPHINE
     Dosage: UNK (5 MICROGRAMS/HOUR)
     Route: 062
  7. BUPRENORPHINE [Concomitant]
     Active Substance: BUPRENORPHINE
     Dosage: UNK (5 MICROGRAMS/HOUR)
     Route: 062
  8. BUPRENORPHINE [Concomitant]
     Active Substance: BUPRENORPHINE
     Dosage: UNK (5 MICROGRAMS/HOUR)
  9. GABAPENTIN [Concomitant]
     Active Substance: GABAPENTIN
     Dosage: UNK
  10. GABAPENTIN [Concomitant]
     Active Substance: GABAPENTIN
     Dosage: UNK
     Route: 065
  11. GABAPENTIN [Concomitant]
     Active Substance: GABAPENTIN
     Dosage: UNK
     Route: 065
  12. GABAPENTIN [Concomitant]
     Active Substance: GABAPENTIN
     Dosage: UNK
  13. METOPROLOL [Concomitant]
     Active Substance: METOPROLOL
     Dosage: UNK
  14. METOPROLOL [Concomitant]
     Active Substance: METOPROLOL
     Dosage: UNK
     Route: 065
  15. METOPROLOL [Concomitant]
     Active Substance: METOPROLOL
     Dosage: UNK
     Route: 065
  16. METOPROLOL [Concomitant]
     Active Substance: METOPROLOL
     Dosage: UNK
  17. ELIQUIS [Concomitant]
     Active Substance: APIXABAN
     Dosage: UNK
  18. ELIQUIS [Concomitant]
     Active Substance: APIXABAN
     Dosage: UNK
     Route: 065
  19. ELIQUIS [Concomitant]
     Active Substance: APIXABAN
     Dosage: UNK
     Route: 065
  20. ELIQUIS [Concomitant]
     Active Substance: APIXABAN
     Dosage: UNK

REACTIONS (1)
  - Orthostatic hypotension [Unknown]
